FAERS Safety Report 9391317 (Version 1)
Quarter: 2013Q3

REPORT INFORMATION
  Report Type: Report from Study
  Country: US (occurrence: US)
  Receive Date: 20130709
  Receipt Date: 20130709
  Transmission Date: 20140515
  Serious: Yes (Death)
  Sender: FDA-Public Use
  Company Number: US-SANOFI-AVENTIS-2013SA069284

PATIENT
  Sex: 0

DRUGS (3)
  1. OXALIPLATIN [Suspect]
     Indication: OESOPHAGEAL ADENOCARCINOMA
     Route: 065
  2. FLUOROURACIL [Suspect]
     Indication: OESOPHAGEAL ADENOCARCINOMA
     Dosage: CONTINOUS INFUSION
     Route: 065
  3. EPIRUBICIN [Suspect]
     Indication: OESOPHAGEAL ADENOCARCINOMA
     Route: 065

REACTIONS (1)
  - Death [Fatal]
